FAERS Safety Report 4694173-3 (Version None)
Quarter: 2005Q2

REPORT INFORMATION
  Report Type: 
  Country: None (occurrence: None)
  Receive Date: 20050616
  Receipt Date: 20050616
  Transmission Date: 20051028
  Serious: Yes (Disabling)
  Sender: FDA-Public Use
  Company Number: None

PATIENT
  Age: 31 Year
  Sex: Female
  Weight: 61.2356 kg

DRUGS (1)
  1. CYMBALTA [Suspect]
     Indication: MAJOR DEPRESSION
     Dosage: 30 MG PO QD
     Route: 048
     Dates: start: 20050301, end: 20050602

REACTIONS (4)
  - DRUG WITHDRAWAL SYNDROME [None]
  - MOOD ALTERED [None]
  - TEARFULNESS [None]
  - VERTIGO [None]
